FAERS Safety Report 9984611 (Version 1)
Quarter: 2014Q1

REPORT INFORMATION
  Report Type: Report from Study
  Country: US (occurrence: US)
  Receive Date: 20140304
  Receipt Date: 20140304
  Transmission Date: 20141002
  Serious: No
  Sender: FDA-Public Use
  Company Number: US-ABBVIE-13P-163-1075255-00

PATIENT
  Age: 62 Year
  Sex: Female

DRUGS (4)
  1. HUMIRA [Suspect]
     Indication: PSORIATIC ARTHROPATHY
     Dates: start: 201212
  2. LANTUS INSULIN [Concomitant]
     Indication: DIABETES MELLITUS
  3. METFORMIN [Concomitant]
     Indication: DIABETES MELLITUS
  4. SPIRONOLACTONE [Concomitant]
     Indication: RENAL DISORDER

REACTIONS (1)
  - Herpes zoster [Not Recovered/Not Resolved]
